FAERS Safety Report 8508543 (Version 2)
Quarter: 2013Q3

REPORT INFORMATION
  Report Type: Spontaneous
  Country: US (occurrence: US)
  Receive Date: 20120412
  Receipt Date: 20130912
  Transmission Date: 20140515
  Serious: No
  Sender: FDA-Public Use
  Company Number: US-ASTRAZENECA-2011SE54002

PATIENT
  Age: 58 Year
  Sex: Female
  Weight: 105.7 kg

DRUGS (7)
  1. NEXIUM [Suspect]
     Indication: GASTROOESOPHAGEAL REFLUX DISEASE
     Dosage: 40 MG, ONE TO TWO TABS DAILY
     Route: 048
  2. NEXIUM [Suspect]
     Indication: GASTROOESOPHAGEAL REFLUX DISEASE
     Route: 048
     Dates: start: 2008, end: 20130623
  3. HYDROCODONE [Concomitant]
     Indication: BACK PAIN
     Dosage: 10/325MG PRN
     Route: 048
     Dates: start: 2004
  4. HYDROCODONE [Concomitant]
     Indication: ARTHRALGIA
     Dosage: 10/325MG PRN
     Route: 048
     Dates: start: 2004
  5. CARISOPROD [Concomitant]
     Indication: MUSCLE RELAXANT THERAPY
     Route: 048
     Dates: start: 2012
  6. CLONAZEPAM [Concomitant]
     Indication: RESTLESS LEGS SYNDROME
     Route: 048
     Dates: start: 201301
  7. LOSARTAN [Concomitant]
     Indication: HYPERTENSION
     Dosage: 50/12MG BID
     Route: 048
     Dates: start: 2010

REACTIONS (8)
  - Neuralgia [Not Recovered/Not Resolved]
  - Muscle spasms [Not Recovered/Not Resolved]
  - Back pain [Unknown]
  - Pain in extremity [Unknown]
  - Abdominal pain upper [Recovered/Resolved]
  - Abdominal discomfort [Not Recovered/Not Resolved]
  - Intentional drug misuse [Unknown]
  - Drug dose omission [Unknown]
